FAERS Safety Report 18535053 (Version 1)
Quarter: 2020Q4

REPORT INFORMATION
  Report Type: Report from Study
  Country: US (occurrence: US)
  Receive Date: 20201123
  Receipt Date: 20201123
  Transmission Date: 20210114
  Serious: Yes (Hospitalization)
  Sender: FDA-Public Use
  Company Number: US-BAYER-2020-248506

PATIENT
  Sex: Female

DRUGS (1)
  1. BETASERON [Suspect]
     Active Substance: INTERFERON BETA-1B
     Indication: MULTIPLE SCLEROSIS
     Dosage: 0.25 MG, QOD
     Route: 058
     Dates: start: 20150205

REACTIONS (14)
  - Seizure [None]
  - Asthenia [Not Recovered/Not Resolved]
  - Amnesia [Not Recovered/Not Resolved]
  - Migraine [Not Recovered/Not Resolved]
  - Tremor [Not Recovered/Not Resolved]
  - Decreased interest [None]
  - Transient ischaemic attack [None]
  - Somnolence [Unknown]
  - Product dose omission issue [Unknown]
  - Heart valve replacement [None]
  - Injection site mass [Not Recovered/Not Resolved]
  - Spondylitis [None]
  - Intervertebral disc protrusion [None]
  - Depressed mood [None]

NARRATIVE: CASE EVENT DATE: 2018
